FAERS Safety Report 9307267 (Version 2)
Quarter: 2013Q2

REPORT INFORMATION
  Report Type: Spontaneous
  Country: ES (occurrence: ES)
  Receive Date: 20130524
  Receipt Date: 20130606
  Transmission Date: 20140414
  Serious: Yes (Hospitalization, Other)
  Sender: FDA-Public Use
  Company Number: ES-SHIRE-ALL1-2013-03286

PATIENT
  Age: 65 Year
  Sex: Female

DRUGS (3)
  1. MEZAVANT [Suspect]
     Indication: COLITIS
     Dosage: 4.8 G, UNKNOWN
     Route: 048
  2. CLAVERSAL [Concomitant]
     Indication: COLITIS
     Dosage: 1000 MG, 3X/DAY:TID
     Route: 048
  3. CORTICOSTEROID NOS [Concomitant]
     Indication: COLITIS

REACTIONS (4)
  - Toxic skin eruption [Recovered/Resolved]
  - Prescribed overdose [Recovered/Resolved]
  - Asthenia [Recovered/Resolved]
  - Fatigue [Recovered/Resolved]
